FAERS Safety Report 16866907 (Version 1)
Quarter: 2019Q4

REPORT INFORMATION
  Report Type: Spontaneous
  Country: US (occurrence: US)
  Receive Date: 20190928
  Receipt Date: 20190928
  Transmission Date: 20200122
  Serious: Yes (Hospitalization, Disabling)
  Sender: FDA-Public Use
  Company Number: None

PATIENT
  Age: 81 Year
  Sex: Male
  Weight: 74.25 kg

DRUGS (6)
  1. CARBIDOPA. [Concomitant]
     Active Substance: CARBIDOPA
  2. NUPLAZID [Suspect]
     Active Substance: PIMAVANSERIN TARTRATE
     Indication: HALLUCINATION
     Dosage: ?          QUANTITY:1 CAPSULE(S);?
     Route: 048
     Dates: start: 20190714, end: 20190726
  3. FLUDROCORTISONE [Concomitant]
     Active Substance: FLUDROCORTISONE
  4. BUPROPION. [Concomitant]
     Active Substance: BUPROPION
  5. ATORVASTIN [Concomitant]
     Active Substance: ATORVASTATIN
  6. AMANTADINE. [Concomitant]
     Active Substance: AMANTADINE HYDROCHLORIDE

REACTIONS (6)
  - Gait disturbance [None]
  - Balance disorder [None]
  - Loss of personal independence in daily activities [None]
  - Fall [None]
  - Hallucination [None]
  - Seizure [None]

NARRATIVE: CASE EVENT DATE: 20190723
